FAERS Safety Report 6931925-0 (Version None)
Quarter: 2010Q3

REPORT INFORMATION
  Report Type: 
  Country: None (occurrence: None)
  Receive Date: 20100819
  Receipt Date: 20100811
  Transmission Date: 20110219
  Serious: Yes (Hospitalization)
  Sender: FDA-Public Use
  Company Number: FR-AMGEN-QUU430381

PATIENT
  Sex: Male

DRUGS (6)
  1. ARANESP [Suspect]
     Indication: ANAEMIA OF MALIGNANT DISEASE
     Route: 042
  2. IMUREL [Concomitant]
     Route: 048
     Dates: start: 19980101, end: 20080828
  3. NEORAL [Concomitant]
     Route: 048
     Dates: start: 19980101, end: 20090401
  4. NEORECORMON [Concomitant]
     Route: 042
  5. CORTANCYL [Concomitant]
     Route: 048
     Dates: start: 19980101
  6. RAPAMUNE [Concomitant]

REACTIONS (1)
  - RENAL CANCER [None]
